FAERS Safety Report 8960763 (Version 1)
Quarter: 2012Q4

REPORT INFORMATION
  Report Type: 
  Country: AU (occurrence: AU)
  Receive Date: 20121212
  Receipt Date: 20121212
  Transmission Date: 20130627
  Serious: Yes (Other)
  Sender: FDA-Public Use
  Company Number: AU-WATSON-2012-21734

PATIENT
  Age: 40 Year
  Sex: Female

DRUGS (3)
  1. PYRIDOXINE HYDROCHLORIDE [Suspect]
     Indication: ERYTHEMA INDURATUM
     Dosage: 25 mg, daily
     Route: 048
     Dates: start: 200202
  2. ISONIAZID [Suspect]
     Indication: ERYTHEMA INDURATUM
     Dosage: 100 mg, daily
     Route: 048
     Dates: start: 200202, end: 200204
  3. PREDNISOLONE [Concomitant]
     Indication: ERYTHEMA INDURATUM
     Dosage: 25 mg, daily
     Route: 048

REACTIONS (1)
  - Neuropathy peripheral [Recovering/Resolving]
